FAERS Safety Report 7274624-0 (Version None)
Quarter: 2011Q1

REPORT INFORMATION
  Report Type: 
  Country: None (occurrence: None)
  Receive Date: 20110204
  Receipt Date: 20110131
  Transmission Date: 20110831
  Serious: Yes (Hospitalization)
  Sender: FDA-Public Use
  Company Number: US-BRISTOL-MYERS SQUIBB COMPANY-15081425

PATIENT
  Age: 70 Year
  Sex: Male
  Weight: 59 kg

DRUGS (21)
  1. AMLODIPINE [Concomitant]
     Indication: HYPERTENSION
  2. SIMVASTATIN [Concomitant]
     Indication: BLOOD CHOLESTEROL
     Dates: end: 20100326
  3. VICODIN [Concomitant]
     Dates: start: 20091023
  4. WELLBUTRIN [Concomitant]
     Dates: start: 20100128
  5. PRILOSEC [Concomitant]
     Dates: start: 20100319
  6. COMPAZINE [Concomitant]
     Dates: start: 20091217
  7. KYTRIL [Concomitant]
     Dates: start: 20091217
  8. CALCIUM [Concomitant]
     Dates: start: 20091023
  9. SLO-MAG [Concomitant]
     Dates: start: 20100107
  10. DEXAMETHASONE [Concomitant]
     Dates: start: 20091216
  11. BEVACIZUMAB [Suspect]
     Indication: NON-SMALL CELL LUNG CANCER
     Dosage: REGIMEN 1:17-DEC-2009 TO 18FEB10(64 D), 2 REGIMEN:11MAR10 TO 15APR10=36DAYS
     Route: 042
     Dates: start: 20091217, end: 20100311
  12. CYANOCOBALAMIN-ZINC TANNATE COMPLEX [Concomitant]
     Dates: start: 20091209
  13. NEULASTA [Concomitant]
     Dates: start: 20091218
  14. LISINOPRIL [Concomitant]
     Indication: HYPERTENSION
  15. PEMETREXED DISODIUM [Suspect]
     Indication: NON-SMALL CELL LUNG CANCER
     Dosage: REGIMEN 1:17-DEC-2009-18FEB10(64 D), 2 REGIMEN:11MAR10 TO 15APR10=36DAYS
     Route: 042
     Dates: start: 20091217, end: 20100311
  16. CARBOPLATIN [Suspect]
     Indication: NON-SMALL CELL LUNG CANCER
     Dosage: 1 DF=6 AUC RECENT INF ON 18FEB10
     Route: 042
     Dates: start: 20091217, end: 20100218
  17. MEGACE [Concomitant]
     Dates: start: 20091209
  18. BUPROPION HCL [Concomitant]
     Indication: BLOOD PRESSURE
     Dates: start: 20100326
  19. DIFLUCAN [Concomitant]
     Dates: start: 20100402
  20. SUCRALFATE [Concomitant]
     Indication: STOMATITIS
     Dates: start: 20100326
  21. FOLIC ACID [Concomitant]
     Dates: start: 20091023

REACTIONS (4)
  - PNEUMONIA [None]
  - OESOPHAGITIS [None]
  - MALNUTRITION [None]
  - DEHYDRATION [None]
